FAERS Safety Report 5523379-6 (Version None)
Quarter: 2007Q4

REPORT INFORMATION
  Report Type: 
  Country: None (occurrence: None)
  Receive Date: 20071121
  Receipt Date: 20071115
  Transmission Date: 20080405
  Serious: Yes (Other)
  Sender: FDA-Public Use
  Company Number: B0496311A

PATIENT
  Sex: Male

DRUGS (1)
  1. ZYBAN [Suspect]
     Route: 048
     Dates: start: 20061001, end: 20061001

REACTIONS (3)
  - DEPRESSION [None]
  - HALLUCINATION [None]
  - SUICIDE ATTEMPT [None]
